FAERS Safety Report 4551319-5 (Version None)
Quarter: 2005Q1

REPORT INFORMATION
  Report Type: 
  Country: None (occurrence: None)
  Receive Date: 20050110
  Receipt Date: 20050103
  Transmission Date: 20050727
  Serious: Yes (Hospitalization, Other)
  Sender: FDA-Public Use
  Company Number: 2004-10-0998

PATIENT
  Age: 51 Year
  Sex: Female

DRUGS (9)
  1. AERIUS (DESLORATADINE) [Suspect]
     Indication: DERMATITIS ALLERGIC
     Dosage: 5 MG ORAL
     Route: 048
  2. POLARAMINE [Suspect]
     Indication: PRURITUS
     Dosage: ORAL
     Route: 048
  3. ZADITEN [Concomitant]
  4. RHINOCORT [Concomitant]
  5. PULMICORT [Concomitant]
     Dosage: PRN
  6. XYZALL    (LEVOCETIRIZINE HYDROCHLORIDE) [Concomitant]
  7. DAFLON [Concomitant]
  8. AMLOR 5 [Concomitant]
  9. ZURCAL        (PANTOPRAZOLE) [Concomitant]

REACTIONS (6)
  - COMA [None]
  - DIABETES MELLITUS [None]
  - DRUG INEFFECTIVE [None]
  - DRY MOUTH [None]
  - PANCREAS INFECTION [None]
  - PRURITUS [None]
